FAERS Safety Report 23150432 (Version 2)
Quarter: 2023Q4

REPORT INFORMATION
  Report Type: Report from Study
  Country: GR (occurrence: GR)
  Receive Date: 20231106
  Receipt Date: 20231116
  Transmission Date: 20240110
  Serious: Yes (Hospitalization)
  Sender: FDA-Public Use
  Company Number: GR-ABBVIE-5478867

PATIENT
  Sex: Female

DRUGS (2)
  1. CARBIDOPA\LEVODOPA [Suspect]
     Active Substance: CARBIDOPA\LEVODOPA
     Indication: Parkinson^s disease
     Dosage: MORNING DOSE: 2.0ML; CONTINUOUS RATE: 1.2ML/H; EXTRA DOSE: 0.8ML
     Route: 050
     Dates: start: 20180316
  2. CARBIDOPA\LEVODOPA [Suspect]
     Active Substance: CARBIDOPA\LEVODOPA

REACTIONS (3)
  - Respiratory tract infection [Recovered/Resolved]
  - Oxygen saturation decreased [Recovered/Resolved]
  - SARS-CoV-2 test positive [Recovered/Resolved]
